FAERS Safety Report 16784412 (Version 2)
Quarter: 2020Q1

REPORT INFORMATION
  Report Type: Spontaneous
  Country: IE (occurrence: IE)
  Receive Date: 20190909
  Receipt Date: 20200110
  Transmission Date: 20200409
  Serious: No
  Sender: FDA-Public Use
  Company Number: IE-BEH-2019106703

PATIENT
  Age: 71 Year
  Sex: Male

DRUGS (5)
  1. RESPREEZA [Suspect]
     Active Substance: .ALPHA.1-PROTEINASE INHIBITOR HUMAN
     Dosage: DOUBLE DOSE
     Route: 042
     Dates: start: 20191219, end: 20191219
  2. RESPREEZA [Suspect]
     Active Substance: .ALPHA.1-PROTEINASE INHIBITOR HUMAN
     Dosage: DOUBLE DOSE
     Route: 065
     Dates: start: 20190307, end: 20190307
  3. RESPREEZA [Suspect]
     Active Substance: .ALPHA.1-PROTEINASE INHIBITOR HUMAN
     Dosage: DOUBLE DOSE
     Route: 065
     Dates: start: 20171221, end: 20171221
  4. RESPREEZA [Suspect]
     Active Substance: .ALPHA.1-PROTEINASE INHIBITOR HUMAN
     Indication: ALPHA-1 ANTI-TRYPSIN DEFICIENCY
     Dosage: DOUBLE DOSE
     Route: 065
     Dates: start: 20161220, end: 20161220
  5. RESPREEZA [Suspect]
     Active Substance: .ALPHA.1-PROTEINASE INHIBITOR HUMAN
     Dosage: 8676 MILLIGRAM
     Route: 042

REACTIONS (2)
  - Intentional overdose [Unknown]
  - No adverse event [Unknown]
